FAERS Safety Report 5918066-6 (Version None)
Quarter: 2008Q4

REPORT INFORMATION
  Report Type: 
  Country: None (occurrence: None)
  Receive Date: 20081009
  Receipt Date: 20080909
  Transmission Date: 20090506
  Serious: Yes (Hospitalization)
  Sender: FDA-Public Use
  Company Number: 2008S1016366

PATIENT
  Age: 80 Year
  Sex: Female

DRUGS (2)
  1. PREDNISONE [Suspect]
     Indication: RHEUMATOID ARTHRITIS
     Dosage: 5 MG; DAILY;  15 MG; DAILY
  2. METHOTREXATE [Suspect]
     Indication: RHEUMATOID ARTHRITIS
     Dosage: 12.5 MG; WEEKLY

REACTIONS (9)
  - ACUTE RESPIRATORY DISTRESS SYNDROME [None]
  - ANOREXIA [None]
  - GRANULOMA [None]
  - INFLAMMATION [None]
  - LYMPHOPENIA [None]
  - PHAEHYPHOMYCOSIS [None]
  - STAPHYLOCOCCAL INFECTION [None]
  - ULCER [None]
  - WEIGHT DECREASED [None]
